FAERS Safety Report 24268526 (Version 1)
Quarter: 2024Q3

REPORT INFORMATION
  Report Type: Report from Study
  Country: US (occurrence: US)
  Receive Date: 20240830
  Receipt Date: 20240830
  Transmission Date: 20241017
  Serious: No
  Sender: ROCHE
  Company Number: US-ROCHE-10000069022

PATIENT
  Age: 34 Year
  Sex: Female
  Weight: 58.06 kg

DRUGS (1)
  1. OCREVUS [Suspect]
     Active Substance: OCRELIZUMAB
     Indication: Relapsing-remitting multiple sclerosis
     Dosage: DATE OF TREATMENT: 04/JAN/2024, 18/JAN/2024
     Route: 042
     Dates: start: 20240125

REACTIONS (1)
  - Tuberculin test positive [Recovered/Resolved]
